FAERS Safety Report 11077854 (Version 1)
Quarter: 2015Q2

REPORT INFORMATION
  Report Type: Spontaneous
  Country: US (occurrence: US)
  Receive Date: 20150430
  Receipt Date: 20150430
  Transmission Date: 20150821
  Serious: Yes (Other)
  Sender: FDA-Public Use
  Company Number: US-THROMBOGENICS NV-SPO-2015-1840

PATIENT
  Age: 60 Year
  Sex: Female

DRUGS (1)
  1. JETREA [Suspect]
     Active Substance: OCRIPLASMIN
     Indication: VITREOUS ADHESIONS
     Dosage: 0.125 MG, ONE TIME DOSE
     Route: 031
     Dates: start: 20141212, end: 20141212

REACTIONS (6)
  - Vision blurred [Recovered/Resolved]
  - Vitreous floaters [Not Recovered/Not Resolved]
  - Retinal detachment [Not Recovered/Not Resolved]
  - Photopsia [Recovered/Resolved]
  - Visual impairment [Unknown]
  - Macular hole [Not Recovered/Not Resolved]

NARRATIVE: CASE EVENT DATE: 20141212
